FAERS Safety Report 25463681 (Version 2)
Quarter: 2025Q2

REPORT INFORMATION
  Report Type: Report from Study
  Country: US (occurrence: US)
  Receive Date: 20250621
  Receipt Date: 20250630
  Transmission Date: 20250717
  Serious: Yes (Other)
  Sender: CSL BEHRING
  Company Number: US-BEH-2025209637

PATIENT
  Age: 47 Year
  Sex: Female
  Weight: 119.09 kg

DRUGS (1)
  1. BERINERT [Suspect]
     Active Substance: HUMAN C1-ESTERASE INHIBITOR
     Indication: Hereditary angioedema
     Route: 058

REACTIONS (6)
  - Hereditary angioedema [Recovering/Resolving]
  - Gastrointestinal disorder [Unknown]
  - Product use issue [Unknown]
  - Anxiety [Unknown]
  - Stress [Unknown]
  - Insurance issue [Unknown]
